FAERS Safety Report 7475771-0 (Version None)
Quarter: 2011Q2

REPORT INFORMATION
  Report Type: 
  Country: None (occurrence: None)
  Receive Date: 20110512
  Receipt Date: 20110504
  Transmission Date: 20111010
  Serious: Yes (Hospitalization, Other)
  Sender: FDA-Public Use
  Company Number: US-NAPPMUNDI-USA-2011-0067700

PATIENT
  Sex: Male

DRUGS (1)
  1. OXYCODONE HCL [Suspect]
     Indication: DRUG ABUSE
     Dosage: 80 MG, 2 TABLETS EVERY 12 HOURS
     Route: 048

REACTIONS (5)
  - DRUG ABUSE [None]
  - VOMITING [None]
  - RESPIRATORY ARREST [None]
  - ASPIRATION [None]
  - INFLUENZA [None]
